FAERS Safety Report 7677274-7 (Version None)
Quarter: 2011Q3

REPORT INFORMATION
  Report Type: 
  Country: None (occurrence: None)
  Receive Date: 20110811
  Receipt Date: 20110803
  Transmission Date: 20111222
  Serious: Yes (Hospitalization)
  Sender: FDA-Public Use
  Company Number: US-BAYER-201037508NA

PATIENT
  Age: 24 Year
  Sex: Female
  Weight: 44.444 kg

DRUGS (9)
  1. YAZ [Suspect]
     Indication: ORAL CONTRACEPTION
     Dosage: UNK
     Route: 048
     Dates: start: 20061129, end: 20091224
  2. SYNTHROID [Concomitant]
     Indication: HYPOTHYROIDISM
     Dosage: UNK
     Dates: start: 19990101
  3. PRENATAL VITAMINS [Concomitant]
  4. IBUPROFEN [Concomitant]
     Dosage: 800 MG, UNK
     Route: 048
  5. ANTIEMETICS AND ANTINAUSEANTS [Concomitant]
  6. FOLIC ACID [Concomitant]
     Dosage: 800 UNK, UNK
  7. LEVOTHYROXINE SODIUM [Concomitant]
     Dosage: UNK
     Route: 048
     Dates: start: 20070501
  8. NEXIUM [Concomitant]
     Dosage: DAILY DOSE 40 MG
     Route: 048
     Dates: start: 20070914
  9. WELLBUTRIN [Concomitant]
     Dosage: UNK
     Route: 048
     Dates: start: 20070814, end: 20070822

REACTIONS (5)
  - CHOLECYSTITIS [None]
  - PAIN [None]
  - CHOLELITHIASIS [None]
  - GALLBLADDER INJURY [None]
  - SCAR [None]
